FAERS Safety Report 6341729-8 (Version None)
Quarter: 2009Q3

REPORT INFORMATION
  Report Type: 
  Country: None (occurrence: None)
  Receive Date: 20090904
  Receipt Date: 20090824
  Transmission Date: 20100115
  Serious: Yes (Other)
  Sender: FDA-Public Use
  Company Number: DE-PFIZER INC-2009253426

PATIENT
  Age: 79 Year

DRUGS (10)
  1. LYRICA [Suspect]
     Indication: PAIN
     Dosage: 75 MG, 1X/DAY
     Route: 048
     Dates: start: 20090801, end: 20090803
  2. HYDROMORPHONE [Concomitant]
     Indication: PAIN
     Dosage: 4 MG, 1X/DAY
     Route: 048
     Dates: start: 20090729
  3. HYDROMORPHONE [Concomitant]
     Dosage: 8 MG, 1X/DAY
     Route: 048
     Dates: end: 20090728
  4. FENISTIL-RETARD [Concomitant]
     Indication: PRURITUS
     Dosage: 4 MG, 1X/DAY
     Route: 048
     Dates: start: 20090706
  5. PANTOZOL [Concomitant]
     Dosage: UNK
  6. COAPROVEL [Concomitant]
     Dosage: UNK
  7. TOREM [Concomitant]
     Dosage: UNK
  8. XIPAMIDE [Concomitant]
     Dosage: UNK
  9. SPIRONOLACTONE [Concomitant]
     Dosage: UNK
  10. MARCUMAR [Concomitant]
     Dosage: UNK

REACTIONS (2)
  - ASTERIXIS [None]
  - BLOOD CREATININE INCREASED [None]
